FAERS Safety Report 8285715-X (Version None)
Quarter: 2012Q2

REPORT INFORMATION
  Report Type: 
  Country: None (occurrence: None)
  Receive Date: 20120413
  Receipt Date: 20120402
  Transmission Date: 20120825
  Serious: Yes (Hospitalization)
  Sender: FDA-Public Use
  Company Number: IT-ROCHE-1033032

PATIENT
  Sex: Female
  Weight: 80 kg

DRUGS (4)
  1. VISMODEGIB [Suspect]
     Indication: BASAL CELL CARCINOMA
     Dosage: TAKEN DAILY, LAST DOSE PRIOR TO HEPATOTOXICITY: 18/JAN/2012
     Route: 048
     Dates: start: 20111125, end: 20120101
  2. VISMODEGIB [Suspect]
     Dates: start: 20120222
  3. LEVOTHYROXINE SODIUM [Concomitant]
  4. DULOXETINE HYDROCHLORIDE [Concomitant]
     Dates: end: 20120128

REACTIONS (1)
  - HEPATOTOXICITY [None]
